FAERS Safety Report 16719809 (Version 1)
Quarter: 2019Q3

REPORT INFORMATION
  Report Type: Spontaneous
  Country: IT (occurrence: IT)
  Receive Date: 20190820
  Receipt Date: 20190820
  Transmission Date: 20191005
  Serious: Yes (Hospitalization)
  Sender: FDA-Public Use
  Company Number: IT-MICRO LABS LIMITED-ML2019-01969

PATIENT
  Age: 60 Year
  Sex: Male

DRUGS (2)
  1. WARFARIN [Suspect]
     Active Substance: WARFARIN
     Indication: THROMBOSIS PROPHYLAXIS
  2. SIMVASTATIN. [Suspect]
     Active Substance: SIMVASTATIN

REACTIONS (2)
  - Labelled drug-drug interaction medication error [Recovered/Resolved]
  - Epistaxis [Recovered/Resolved]
